FAERS Safety Report 14206744 (Version 4)
Quarter: 2023Q1

REPORT INFORMATION
  Report Type: Report from Study
  Country: JP (occurrence: JP)
  Receive Date: 20171121
  Receipt Date: 20230106
  Transmission Date: 20230418
  Serious: Yes (Death, Hospitalization, Other)
  Sender: FDA-Public Use
  Company Number: JP-KYOWAKIRIN-2017JPN-NSP000838

PATIENT
  Age: 75 Year
  Sex: Male

DRUGS (24)
  1. DARBEPOETIN ALFA [Suspect]
     Active Substance: DARBEPOETIN ALFA
     Indication: Myelodysplastic syndrome
     Dosage: 180 MICROGRAM, Q2WK
     Route: 058
     Dates: start: 20170529, end: 20170725
  2. DARBEPOETIN ALFA [Suspect]
     Active Substance: DARBEPOETIN ALFA
     Dosage: 30 MICROGRAM
     Route: 058
     Dates: start: 20150722, end: 20150722
  3. DARBEPOETIN ALFA [Suspect]
     Active Substance: DARBEPOETIN ALFA
     Dosage: 120 MICROGRAM, Q3WK
     Route: 058
     Dates: start: 20150805, end: 20150914
  4. DARBEPOETIN ALFA [Suspect]
     Active Substance: DARBEPOETIN ALFA
     Dosage: 120 MICROGRAM, Q2WK
     Route: 058
     Dates: start: 20150928, end: 20160219
  5. DARBEPOETIN ALFA [Suspect]
     Active Substance: DARBEPOETIN ALFA
     Dosage: 120 MICROGRAM, Q2WK
     Route: 058
     Dates: start: 20160224, end: 20160421
  6. DARBEPOETIN ALFA [Suspect]
     Active Substance: DARBEPOETIN ALFA
     Dosage: 120 MICROGRAM
     Route: 058
     Dates: start: 20160502, end: 20160502
  7. DARBEPOETIN ALFA [Suspect]
     Active Substance: DARBEPOETIN ALFA
     Dosage: 120 MICROGRAM, Q2WK
     Route: 058
     Dates: start: 20160513, end: 20160706
  8. DARBEPOETIN ALFA [Suspect]
     Active Substance: DARBEPOETIN ALFA
     Dosage: 120 MICROGRAM
     Route: 058
     Dates: start: 20160726, end: 20160726
  9. DARBEPOETIN ALFA [Suspect]
     Active Substance: DARBEPOETIN ALFA
     Dosage: 120 MICROGRAM, QWK
     Route: 058
     Dates: start: 20160805, end: 20160812
  10. DARBEPOETIN ALFA [Suspect]
     Active Substance: DARBEPOETIN ALFA
     Dosage: 120 MICROGRAM, Q2WK
     Route: 058
     Dates: start: 20160824, end: 20170501
  11. DARBEPOETIN ALFA [Suspect]
     Active Substance: DARBEPOETIN ALFA
     Dosage: 120 MICROGRAM
     Route: 058
     Dates: start: 20170512, end: 20170512
  12. ALFAROL [Concomitant]
     Active Substance: ALFACALCIDOL
     Indication: Myelodysplastic syndrome
     Dosage: 0.5 MICROGRAM
     Route: 048
     Dates: end: 20170821
  13. MENATETRENONE [Concomitant]
     Active Substance: MENATETRENONE
     Indication: Myelodysplastic syndrome
     Dosage: 45 MILLIGRAM
     Route: 048
     Dates: end: 20170821
  14. PYRIDOXAL [Concomitant]
     Active Substance: PYRIDOXAL
     Indication: Myelodysplastic syndrome
     Dosage: 60 MILLIGRAM
     Route: 048
     Dates: end: 20170821
  15. ASPIRIN [Concomitant]
     Active Substance: ASPIRIN
     Indication: Product used for unknown indication
     Dosage: 100 MILLIGRAM
     Route: 048
     Dates: end: 20171024
  16. CILOSTAZOL [Concomitant]
     Active Substance: CILOSTAZOL
     Indication: Thromboangiitis obliterans
     Dosage: 200 MILLIGRAM
     Route: 048
     Dates: end: 20171024
  17. SITAGLIPTIN [Concomitant]
     Active Substance: SITAGLIPTIN
     Indication: Diabetes mellitus
     Dosage: 50 MILLIGRAM
     Route: 048
  18. AMARYL [Concomitant]
     Active Substance: GLIMEPIRIDE
     Indication: Diabetes mellitus
     Dosage: 1 MILLIGRAM
     Route: 048
  19. OMEPRAZOLE [Concomitant]
     Active Substance: OMEPRAZOLE
     Indication: Product used for unknown indication
     Dosage: 10 MILLIGRAM
     Route: 048
     Dates: end: 20170821
  20. MAGNESIUM OXIDE [Concomitant]
     Active Substance: MAGNESIUM OXIDE
     Indication: Constipation
     Dosage: 990 MILLIGRAM
     Route: 048
     Dates: start: 20160406
  21. AMITIZA [Concomitant]
     Active Substance: LUBIPROSTONE
     Indication: Constipation
     Dosage: 48 MICROGRAM
     Route: 048
     Dates: start: 20160420, end: 20170821
  22. LYRICA [Concomitant]
     Active Substance: PREGABALIN
     Indication: Spinal stenosis
     Dosage: UNK
     Route: 048
     Dates: start: 20170602
  23. CALONAL [Concomitant]
     Active Substance: ACETAMINOPHEN
     Indication: Spinal stenosis
     Dosage: 1000 MILLIGRAM
     Route: 048
     Dates: start: 20170616
  24. SENNOSIDES [Concomitant]
     Active Substance: SENNOSIDES
     Indication: Constipation
     Dosage: 24 MILLIGRAM
     Route: 048
     Dates: start: 20160307

REACTIONS (1)
  - Myelodysplastic syndrome [Fatal]

NARRATIVE: CASE EVENT DATE: 20170725
